FAERS Safety Report 4992085-9 (Version None)
Quarter: 2006Q2

REPORT INFORMATION
  Report Type: 
  Country: None (occurrence: None)
  Receive Date: 20060504
  Receipt Date: 20051031
  Transmission Date: 20061013
  Serious: Yes (Hospitalization)
  Sender: FDA-Public Use
  Company Number: US-MERCK-0511USA00358

PATIENT
  Age: 65 Year
  Sex: Male
  Weight: 89 kg

DRUGS (6)
  1. VIOXX [Suspect]
     Indication: ARTHRITIS
     Route: 048
     Dates: start: 19991214, end: 20030218
  2. VIOXX [Suspect]
     Route: 048
     Dates: start: 19991201, end: 20030218
  3. ALLOPURINOL MSD [Concomitant]
     Indication: GOUT
     Route: 065
     Dates: start: 19800101
  4. CARISOPRODOL [Concomitant]
     Indication: PAIN
     Route: 065
     Dates: start: 19990630, end: 20060119
  5. HYDROCODONE BITARTRATE + ACETAMINOPHEN [Concomitant]
     Indication: PAIN
     Route: 065
     Dates: start: 19990630, end: 20060119
  6. DOXEPIN HYDROCHLORIDE [Concomitant]
     Indication: HEADACHE
     Route: 065
     Dates: start: 19990524

REACTIONS (7)
  - ACUTE MYOCARDIAL INFARCTION [None]
  - ANAEMIA [None]
  - ANGINA UNSTABLE [None]
  - ANXIETY [None]
  - CORONARY ARTERY DISEASE [None]
  - DEPRESSION [None]
  - HYPERTENSION [None]
